FAERS Safety Report 6399304-5 (Version None)
Quarter: 2009Q4

REPORT INFORMATION
  Report Type: 
  Country: None (occurrence: None)
  Receive Date: 20091014
  Receipt Date: 20070913
  Transmission Date: 20100525
  Serious: Yes (Hospitalization, Other)
  Sender: FDA-Public Use
  Company Number: US-ASTRAZENECA-2007UW12846

PATIENT
  Age: 16551 Day
  Sex: Female
  Weight: 151.5 kg

DRUGS (30)
  1. SEROQUEL [Suspect]
     Indication: BIPOLAR DISORDER
     Route: 048
     Dates: start: 20050501
  2. SEROQUEL [Suspect]
     Indication: DEPRESSION
     Route: 048
     Dates: start: 20050501
  3. SEROQUEL [Suspect]
     Dosage: 25MG-600MG
     Route: 048
     Dates: start: 20060308
  4. SEROQUEL [Suspect]
     Dosage: 25MG-600MG
     Route: 048
     Dates: start: 20060308
  5. RISPERDAL [Concomitant]
     Dates: start: 20020501, end: 20041101
  6. RISPERDAL [Concomitant]
     Dates: start: 20051005
  7. PROZAC [Concomitant]
     Dosage: 10 MG, 20 MG
     Dates: start: 20050422, end: 20070510
  8. PROZAC [Concomitant]
     Dates: start: 20000531
  9. LORAZEPAM [Concomitant]
     Dosage: 0.5 - 1 MG
     Dates: start: 20050316, end: 20070830
  10. DEPAKOTE [Concomitant]
     Dates: start: 20050911
  11. KEFLEX [Concomitant]
     Dates: start: 20060426
  12. ZOLOFT [Concomitant]
     Dates: start: 20071205
  13. LORTAB [Concomitant]
     Indication: HEADACHE
     Dates: start: 20041123
  14. LORTAB [Concomitant]
     Indication: MUSCLE SPASMS
     Dates: start: 20041123
  15. LORTAB [Concomitant]
     Indication: PAIN
     Dates: start: 20041123
  16. AMBIEN [Concomitant]
     Dates: start: 20071205
  17. NEXIUM [Concomitant]
     Dosage: 40MG, EVERY DAY, EVERY MORNING
     Dates: start: 20051001
  18. BENTYL [Concomitant]
     Dosage: 20MG, FOUR TIMES A DAY AND AT NIGHT
     Route: 048
     Dates: start: 20051001
  19. ASPIRIN [Concomitant]
     Dates: start: 20060913
  20. CLONAZEPAM [Concomitant]
     Dosage: 2MG TABLET TWICE A DAY AND 1 MG TABLET EACH NOON
     Route: 048
     Dates: start: 20080115
  21. ALTACE [Concomitant]
     Route: 048
     Dates: start: 20080602
  22. CRESTOR [Concomitant]
     Dates: start: 20080602
  23. CYMBALTA [Concomitant]
     Dates: start: 20080602
  24. IMDUR [Concomitant]
     Dates: start: 20080602
  25. NORVASC [Concomitant]
     Dates: start: 20080602
  26. PLAVIX [Concomitant]
     Dates: start: 20080602
  27. PROTONIX [Concomitant]
     Dates: start: 20080602
  28. TOPROL-XL [Concomitant]
     Dates: start: 20080602
  29. XANAX [Concomitant]
     Dosage: 5MG, THREE TIMES A DAY, AS REQUIRED
     Dates: start: 20080602
  30. NITROGLYCERIN [Concomitant]
     Route: 060
     Dates: start: 20080602

REACTIONS (14)
  - ACUTE CORONARY SYNDROME [None]
  - ARTHRALGIA [None]
  - CARDIOMEGALY [None]
  - CHONDROMALACIA [None]
  - CONDUCTIVE DEAFNESS [None]
  - CORONARY ARTERY DISEASE [None]
  - DYSPAREUNIA [None]
  - EAR OPERATION [None]
  - HYSTERECTOMY [None]
  - LIGAMENT RUPTURE [None]
  - OSTEOARTHRITIS [None]
  - PELVIC PAIN [None]
  - TYPE 2 DIABETES MELLITUS [None]
  - UTERINE LEIOMYOMA [None]
